FAERS Safety Report 20161238 (Version 1)
Quarter: 2021Q4

REPORT INFORMATION
  Report Type: Spontaneous
  Country: US (occurrence: US)
  Receive Date: 20211208
  Receipt Date: 20211208
  Transmission Date: 20220303
  Serious: Yes (Hospitalization)
  Sender: FDA-Public Use
  Company Number: US-NIPPON SHINYAKU-NIP-2021-000070

PATIENT

DRUGS (1)
  1. VILTEPSO [Suspect]
     Active Substance: VILTOLARSEN
     Indication: Duchenne muscular dystrophy
     Dosage: UNK
     Route: 042

REACTIONS (2)
  - Renal disorder [Unknown]
  - Bladder disorder [Unknown]

NARRATIVE: CASE EVENT DATE: 20211101
